FAERS Safety Report 14939735 (Version 1)
Quarter: 2018Q2

REPORT INFORMATION
  Report Type: Spontaneous
  Country: CA (occurrence: CA)
  Receive Date: 20180525
  Receipt Date: 20180525
  Transmission Date: 20180711
  Serious: Yes (Other)
  Sender: FDA-Public Use
  Company Number: CA-TEVA-2018-CA-895632

PATIENT
  Age: 66 Year
  Sex: Female

DRUGS (2)
  1. ACT OLMESARTAN HCT [Suspect]
     Active Substance: HYDROCHLOROTHIAZIDE\OLMESARTAN MEDOXOMIL
     Indication: HYPERTENSION
     Route: 065
  2. ATENOLOL TABLETS, BP [Concomitant]
     Active Substance: ATENOLOL
     Route: 065

REACTIONS (3)
  - Dizziness [Unknown]
  - Syncope [Unknown]
  - Heart rate abnormal [Unknown]
